FAERS Safety Report 6279650-6 (Version None)
Quarter: 2009Q3

REPORT INFORMATION
  Report Type: 
  Country: None (occurrence: None)
  Receive Date: 20090723
  Receipt Date: 20090717
  Transmission Date: 20100115
  Serious: Yes (Death, Other)
  Sender: FDA-Public Use
  Company Number: US-GENENTECH-286914

PATIENT

DRUGS (5)
  1. RITUXIMAB [Suspect]
     Indication: B-CELL LYMPHOMA
     Dosage: 375 MG/M2, UNK
     Route: 042
  2. ALLOPURINOL [Suspect]
     Indication: DRUG USE FOR UNKNOWN INDICATION
     Route: 065
  3. SULFAMETHOXAZOLE AND TRIMETHOPRIM [Suspect]
     Indication: INFECTION PROPHYLAXIS
     Route: 065
  4. FLUDARABINE PHOSPHATE [Suspect]
     Indication: B-CELL LYMPHOMA
     Dosage: 25 MG/M2, UNK
     Route: 042
  5. ACYCLOVIR [Concomitant]
     Indication: DRUG USE FOR UNKNOWN INDICATION

REACTIONS (12)
  - APLASTIC ANAEMIA [None]
  - BACTERIAL SEPSIS [None]
  - COLD TYPE HAEMOLYTIC ANAEMIA [None]
  - CONFUSIONAL STATE [None]
  - HYPERSENSITIVITY [None]
  - MYELODYSPLASTIC SYNDROME [None]
  - MYOSITIS [None]
  - NEUTROPENIA [None]
  - NEUTROPENIC SEPSIS [None]
  - PNEUMOCYSTIS JIROVECI PNEUMONIA [None]
  - PNEUMONIA BACTERIAL [None]
  - THROMBOCYTOPENIA [None]
